FAERS Safety Report 15714008 (Version 1)
Quarter: 2018Q4

REPORT INFORMATION
  Report Type: Spontaneous
  Country: US (occurrence: US)
  Receive Date: 20181129
  Receipt Date: 20181129
  Transmission Date: 20190205
  Serious: No
  Sender: FDA-Public Use
  Company Number: None

PATIENT

DRUGS (1)
  1. OXYTOCIN. [Suspect]
     Active Substance: OXYTOCIN

REACTIONS (3)
  - Device issue [None]
  - Incorrect drug administration rate [None]
  - Uterine tachysystole [None]
